FAERS Safety Report 10774776 (Version 1)
Quarter: 2015Q1

REPORT INFORMATION
  Report Type: Spontaneous
  Country: US (occurrence: None)
  Receive Date: 20150206
  Receipt Date: 20150206
  Transmission Date: 20150721
  Serious: Yes (Hospitalization)
  Sender: FDA-Public Use
  Company Number: HYP201408-000052

PATIENT
  Age: 2 Year
  Sex: Female

DRUGS (2)
  1. CITRULLINE [Concomitant]
     Active Substance: CITRULLINE
  2. RAVICTI [Suspect]
     Active Substance: GLYCEROL PHENYLBUTYRATE
     Indication: UREA CYCLE ENZYME DEFICIENCY
     Dates: start: 20140801, end: 20140802

REACTIONS (1)
  - Hyperammonaemic crisis [None]

NARRATIVE: CASE EVENT DATE: 20140802
